FAERS Safety Report 20716532 (Version 1)
Quarter: 2022Q2

REPORT INFORMATION
  Report Type: Spontaneous
  Country: US (occurrence: US)
  Receive Date: 20220416
  Receipt Date: 20220416
  Transmission Date: 20220720
  Serious: Yes (Other)
  Sender: FDA-Public Use
  Company Number: US-drreddys-LIT/USA/22/0148867

PATIENT
  Age: 72 Year
  Sex: Male

DRUGS (12)
  1. TACROLIMUS [Suspect]
     Active Substance: TACROLIMUS
     Indication: Immunosuppressant drug therapy
  2. FLUCONAZOLE [Suspect]
     Active Substance: FLUCONAZOLE
     Indication: Cryptococcal fungaemia
  3. BASILIXIMAB [Suspect]
     Active Substance: BASILIXIMAB
     Indication: Immunosuppressant drug therapy
  4. MYCOPHENOLIC ACID [Suspect]
     Active Substance: MYCOPHENOLIC ACID
     Indication: Immunosuppressant drug therapy
  5. PREDNISONE [Suspect]
     Active Substance: PREDNISONE
     Indication: Immunosuppressant drug therapy
  6. VANCOMYCIN [Suspect]
     Active Substance: VANCOMYCIN
     Indication: Infection prophylaxis
  7. MEROPENEM [Suspect]
     Active Substance: MEROPENEM
     Indication: Infection prophylaxis
  8. HUMAN IMMUNOGLOBULIN G [Suspect]
     Active Substance: HUMAN IMMUNOGLOBULIN G
     Indication: Cytomegalovirus infection
  9. COTRIMOXAZOLE [Suspect]
     Active Substance: SULFAMETHOXAZOLE\TRIMETHOPRIM
     Indication: Prophylaxis
  10. MICAFUNGIN [Suspect]
     Active Substance: MICAFUNGIN
     Indication: Antifungal prophylaxis
  11. NYSTATIN [Suspect]
     Active Substance: NYSTATIN
     Indication: Antifungal prophylaxis
  12. VORICONAZOLE [Suspect]
     Active Substance: VORICONAZOLE
     Indication: Cryptococcal fungaemia

REACTIONS (1)
  - Transplant rejection [Unknown]
